FAERS Safety Report 8372257-6 (Version None)
Quarter: 2012Q2

REPORT INFORMATION
  Report Type: 
  Country: None (occurrence: None)
  Receive Date: 20120521
  Receipt Date: 20120510
  Transmission Date: 20120825
  Serious: Yes (Other)
  Sender: FDA-Public Use
  Company Number: JP-AMGEN-JPNSP2012030791

PATIENT
  Age: 64 Year
  Sex: Female

DRUGS (4)
  1. ENBREL [Suspect]
     Indication: RHEUMATOID ARTHRITIS
     Dosage: 25 MG, 2X/WEEK
     Dates: start: 20120106
  2. AZULFIDINE [Interacting]
     Dosage: 1000 MG, UNK
  3. METHOTREXATE SODIUM [Concomitant]
     Dosage: 10 MG, UNK
  4. FOLIAMIN [Concomitant]
     Dosage: 5 MG, UNK

REACTIONS (2)
  - WHITE BLOOD CELL COUNT DECREASED [None]
  - DRUG INTERACTION [None]
